FAERS Safety Report 12626253 (Version 1)
Quarter: 2016Q3

REPORT INFORMATION
  Report Type: Spontaneous
  Country: AU (occurrence: AU)
  Receive Date: 20160805
  Receipt Date: 20160805
  Transmission Date: 20161109
  Serious: Yes (Other)
  Sender: FDA-Public Use
  Company Number: AU-PFIZER INC-2016376124

PATIENT
  Sex: Male

DRUGS (8)
  1. AMLODIPINE [Suspect]
     Active Substance: AMLODIPINE BESYLATE
     Route: 065
  2. CHLOROTHIAZIDE. [Suspect]
     Active Substance: CHLOROTHIAZIDE
     Route: 065
  3. COLCHICINE. [Suspect]
     Active Substance: COLCHICINE
     Route: 065
  4. PREDNISOLONE. [Suspect]
     Active Substance: PREDNISOLONE
     Route: 065
  5. ASPIRIN /00002701/ [Suspect]
     Active Substance: ASPIRIN
     Route: 065
  6. FRUSEMIDE /00032601/ [Suspect]
     Active Substance: FUROSEMIDE
     Route: 065
  7. ATENOLOL. [Suspect]
     Active Substance: ATENOLOL
     Route: 048
  8. HYDRALAZINE HYDROCHLORIDE. [Suspect]
     Active Substance: HYDRALAZINE HYDROCHLORIDE
     Route: 065

REACTIONS (1)
  - Duodenal ulcer haemorrhage [Unknown]
